FAERS Safety Report 9105561 (Version 2)
Quarter: 2013Q1

REPORT INFORMATION
  Report Type: Report from Study
  Country: US (occurrence: US)
  Receive Date: 20130220
  Receipt Date: 20130225
  Transmission Date: 20140127
  Serious: No
  Sender: FDA-Public Use
  Company Number: US-ASTELLAS-2013US001886

PATIENT
  Sex: Male
  Weight: 82 kg

DRUGS (3)
  1. ERLOTINIB TABLET [Suspect]
     Indication: NON-SMALL CELL LUNG CANCER
     Dosage: 150 MG, UID/QD
     Route: 048
     Dates: start: 201205
  2. DOXYCYCLINE [Concomitant]
     Indication: RASH
     Dosage: UNK
     Route: 048
  3. METAMUCIL                          /00091301/ [Concomitant]
     Indication: DIARRHOEA
     Dosage: 2 DF, UID/QD
     Route: 048
     Dates: start: 201212

REACTIONS (3)
  - Diarrhoea [Recovering/Resolving]
  - Fatigue [Recovering/Resolving]
  - Rash [Recovering/Resolving]
